FAERS Safety Report 13129909 (Version 1)
Quarter: 2017Q1

REPORT INFORMATION
  Report Type: Spontaneous
  Country: US (occurrence: US)
  Receive Date: 20170118
  Receipt Date: 20170118
  Transmission Date: 20170428
  Serious: Yes (Hospitalization)
  Sender: FDA-Public Use
  Company Number: None

PATIENT
  Age: 78 Year
  Sex: Male
  Weight: 99.2 kg

DRUGS (1)
  1. TEMOZOLOMIDE. [Suspect]
     Active Substance: TEMOZOLOMIDE
     Dates: end: 20151112

REACTIONS (10)
  - Atrial fibrillation [None]
  - Dehydration [None]
  - Swollen tongue [None]
  - Chills [None]
  - Abdominal pain [None]
  - Hypophagia [None]
  - Blood sodium decreased [None]
  - Toxicity to various agents [None]
  - Pyrexia [None]
  - Thirst [None]

NARRATIVE: CASE EVENT DATE: 20151111
